FAERS Safety Report 16900595 (Version 1)
Quarter: 2019Q4

REPORT INFORMATION
  Report Type: Spontaneous
  Country: US (occurrence: US)
  Receive Date: 20191009
  Receipt Date: 20191009
  Transmission Date: 20200122
  Serious: No
  Sender: FDA-Public Use
  Company Number: US-SA-2019SA269384

PATIENT
  Age: 62 Year
  Sex: Female

DRUGS (30)
  1. XOLAIR [Interacting]
     Active Substance: OMALIZUMAB
  2. EPINEPHRINE. [Concomitant]
     Active Substance: EPINEPHRINE
  3. FUROSEMIDE. [Concomitant]
     Active Substance: FUROSEMIDE
  4. DUPIXENT [Suspect]
     Active Substance: DUPILUMAB
     Indication: PRODUCT USED FOR UNKNOWN INDICATION
     Dosage: 300 MG, QOW
     Route: 058
     Dates: start: 2019
  5. IPRATROPIUM BROMIDE. [Concomitant]
     Active Substance: IPRATROPIUM BROMIDE
  6. ALBUTEROL SULFATE. [Concomitant]
     Active Substance: ALBUTEROL SULFATE
  7. BUDESONIDE. [Concomitant]
     Active Substance: BUDESONIDE
  8. DOXYCYCLINE [DOXYCYCLINE HYCLATE] [Concomitant]
  9. BIOTIN [Concomitant]
     Active Substance: BIOTIN
  10. HYDROCODONE/ACETAMINOPHEN [Concomitant]
     Active Substance: ACETAMINOPHEN\HYDROCODONE
  11. VITAMINS NOS [Concomitant]
     Active Substance: VITAMINS
  12. MUCINEX [Concomitant]
     Active Substance: GUAIFENESIN
  13. COQ 10 [Concomitant]
     Active Substance: UBIDECARENONE
  14. HYDROCODONE [Concomitant]
     Active Substance: HYDROCODONE
  15. OCUVITE ADULT 50+ [ASCORBIC ACID;COPPER GLUCONATE;FISH OIL;TOCOPHEROL; [Concomitant]
  16. DIFLUCAN [Concomitant]
     Active Substance: FLUCONAZOLE
  17. ADVAIR HFA [Concomitant]
     Active Substance: FLUTICASONE PROPIONATE\SALMETEROL XINAFOATE
  18. EPIPEN [Concomitant]
     Active Substance: EPINEPHRINE
  19. FLONASE ALLERGY RELIEF [Concomitant]
     Active Substance: FLUTICASONE PROPIONATE
  20. MULTAQ [Concomitant]
     Active Substance: DRONEDARONE
  21. FLUCONAZOLE. [Concomitant]
     Active Substance: FLUCONAZOLE
  22. PREDNISONE. [Concomitant]
     Active Substance: PREDNISONE
  23. HIZENTRA [Interacting]
     Active Substance: HUMAN IMMUNOGLOBULIN G
  24. ESTRACE [Concomitant]
     Active Substance: ESTRADIOL
  25. PROLIA [Concomitant]
     Active Substance: DENOSUMAB
  26. DICLOFENAC SODIUM. [Concomitant]
     Active Substance: DICLOFENAC SODIUM
  27. LIVALO [Concomitant]
     Active Substance: PITAVASTATIN CALCIUM
  28. CLARITIN [Concomitant]
     Active Substance: LORATADINE
  29. NYSTATIN. [Concomitant]
     Active Substance: NYSTATIN
  30. POTASSIUM CHLORIDE. [Concomitant]
     Active Substance: POTASSIUM CHLORIDE

REACTIONS (3)
  - Diarrhoea [Unknown]
  - Fatigue [Unknown]
  - Drug interaction [Unknown]

NARRATIVE: CASE EVENT DATE: 2019
